FAERS Safety Report 4843471-9 (Version None)
Quarter: 2005Q4

REPORT INFORMATION
  Report Type: 
  Country: None (occurrence: None)
  Receive Date: 20051027
  Receipt Date: 20050816
  Transmission Date: 20060501
  Serious: No
  Sender: FDA-Public Use
  Company Number: ZICO001275

PATIENT
  Age: 35 Year
  Sex: Male

DRUGS (2)
  1. PRIALT [Suspect]
     Indication: PAIN
     Dosage: INTRATHECAL
     Route: 037
     Dates: start: 20050501, end: 20050601
  2. MORPHINE [Concomitant]

REACTIONS (1)
  - COCCYDYNIA [None]
